FAERS Safety Report 13212230 (Version 2)
Quarter: 2017Q1

REPORT INFORMATION
  Report Type: Spontaneous
  Country: US (occurrence: US)
  Receive Date: 20170210
  Receipt Date: 20170222
  Transmission Date: 20170428
  Serious: No
  Sender: FDA-Public Use
  Company Number: US-BIOMARINAP-US-2017-112740

PATIENT
  Age: 14 Year
  Sex: Female
  Weight: 88 kg

DRUGS (1)
  1. KUVAN [Suspect]
     Active Substance: SAPROPTERIN DIHYDROCHLORIDE
     Indication: PHENYLKETONURIA
     Dosage: 20 MG/KG, QD
     Route: 048
     Dates: start: 20160707

REACTIONS (3)
  - Abdominal pain [Unknown]
  - Gastric ulcer [Unknown]
  - Stress [Unknown]

NARRATIVE: CASE EVENT DATE: 20170130
